FAERS Safety Report 8597612-0 (Version None)
Quarter: 2012Q3

REPORT INFORMATION
  Report Type: 
  Country: None (occurrence: None)
  Receive Date: 20120802
  Receipt Date: 20120718
  Transmission Date: 20120928
  Serious: Yes (Death)
  Sender: FDA-Public Use
  Company Number: JPI-P-022874

PATIENT
  Age: 35 Year
  Sex: Female

DRUGS (2)
  1. XYREM [Suspect]
     Indication: NARCOLEPSY
     Dosage: 6 GM (3 GM, 2 IN1 D), ORAL; 9 GM (4.5 GM, 2 IN 1 D),ORAL
     Route: 048
     Dates: start: 20080212
  2. XYREM [Suspect]
     Indication: NARCOLEPSY
     Dosage: 6 GM (3 GM, 2 IN1 D), ORAL; 9 GM (4.5 GM, 2 IN 1 D),ORAL
     Route: 048
     Dates: start: 20080801

REACTIONS (1)
  - DEATH [None]
